FAERS Safety Report 7826676-4 (Version None)
Quarter: 2011Q4

REPORT INFORMATION
  Report Type: 
  Country: None (occurrence: None)
  Receive Date: 20111020
  Receipt Date: 20111014
  Transmission Date: 20120403
  Serious: Yes (Hospitalization, Other)
  Sender: FDA-Public Use
  Company Number: US-CELGENEUS-163-50794-11101706

PATIENT
  Sex: Male
  Weight: 95.7 kg

DRUGS (13)
  1. NEULASTA [Concomitant]
     Route: 065
     Dates: end: 20111004
  2. CYCLOPHOSPHAMIDE [Suspect]
     Indication: DIFFUSE LARGE B-CELL LYMPHOMA
     Route: 065
     Dates: start: 20110803, end: 20111003
  3. VIDAZA [Suspect]
     Indication: DIFFUSE LARGE B-CELL LYMPHOMA
     Dosage: 75 MILLIGRAM/SQ. METER
     Route: 058
     Dates: start: 20110727, end: 20110731
  4. VIDAZA [Suspect]
     Dosage: 75 MILLIGRAM/SQ. METER
     Route: 058
     Dates: start: 20110815, end: 20110819
  5. DOXORUBICIN HCL [Suspect]
     Indication: DIFFUSE LARGE B-CELL LYMPHOMA
     Route: 065
     Dates: start: 20110803, end: 20111003
  6. COUMADIN [Concomitant]
     Dosage: 5 MILLIGRAM
     Route: 065
  7. LEVAQUIN [Concomitant]
     Indication: PROPHYLAXIS
     Route: 048
     Dates: start: 20111011
  8. VINCRISTINE [Suspect]
     Indication: DIFFUSE LARGE B-CELL LYMPHOMA
     Route: 065
     Dates: start: 20110803, end: 20111003
  9. ONDANSETRON [Concomitant]
     Indication: NAUSEA
     Dosage: 8 MILLIGRAM
     Route: 065
  10. PREDNISOLONE [Suspect]
     Indication: DIFFUSE LARGE B-CELL LYMPHOMA
     Route: 065
     Dates: start: 20110803, end: 20111003
  11. VIDAZA [Suspect]
     Dosage: 75 MILLIGRAM/SQ. METER
     Route: 058
     Dates: start: 20110905, end: 20110910
  12. VIDAZA [Suspect]
     Dosage: 75 MILLIGRAM/SQ. METER
     Route: 058
     Dates: start: 20110926, end: 20111003
  13. RITUXIMAB [Suspect]
     Indication: DIFFUSE LARGE B-CELL LYMPHOMA
     Route: 065
     Dates: start: 20110803, end: 20111003

REACTIONS (4)
  - FEBRILE NEUTROPENIA [None]
  - SYNCOPE [None]
  - PLATELET COUNT DECREASED [None]
  - CELLULITIS [None]
